FAERS Safety Report 7371566-7 (Version None)
Quarter: 2011Q1

REPORT INFORMATION
  Report Type: 
  Country: None (occurrence: None)
  Receive Date: 20110324
  Receipt Date: 20110317
  Transmission Date: 20110831
  Serious: Yes (Hospitalization)
  Sender: FDA-Public Use
  Company Number: US-GILEAD-2011-0035174

PATIENT
  Sex: Female

DRUGS (7)
  1. ADCIRCA [Concomitant]
  2. LASIX [Concomitant]
  3. POTASSIUM CHLORIDE [Concomitant]
  4. LETAIRIS [Suspect]
     Indication: PULMONARY HYPERTENSION
     Route: 048
     Dates: start: 20100316
  5. LETAIRIS [Suspect]
     Indication: INTERSTITIAL LUNG DISEASE
  6. LETAIRIS [Suspect]
     Indication: CONNECTIVE TISSUE DISORDER
  7. PREDNISONE [Concomitant]

REACTIONS (2)
  - UNEVALUABLE EVENT [None]
  - ACUTE RESPIRATORY FAILURE [None]
